FAERS Safety Report 11718853 (Version 1)
Quarter: 2015Q4

REPORT INFORMATION
  Report Type: Spontaneous
  Country: US (occurrence: None)
  Receive Date: 20151109
  Receipt Date: 20151109
  Transmission Date: 20160304
  Serious: Yes (Disabling)
  Sender: FDA-Public Use
  Company Number: None

PATIENT
  Age: 44 Year
  Sex: Female

DRUGS (3)
  1. LEVAQUIN [Suspect]
     Active Substance: LEVOFLOXACIN
     Indication: URINARY TRACT INFECTION
     Dosage: 2 SCRIPTS
     Route: 048
     Dates: start: 20090212
  2. LEVAQUIN [Suspect]
     Active Substance: LEVOFLOXACIN
     Indication: EAR INFECTION
     Dosage: 2 SCRIPTS
     Route: 048
     Dates: start: 20090212
  3. LEVAQUIN [Suspect]
     Active Substance: LEVOFLOXACIN
     Indication: VERTIGO
     Dosage: 2 SCRIPTS
     Route: 048
     Dates: start: 20090212

REACTIONS (23)
  - Chest pain [None]
  - Burning sensation [None]
  - Fibromyalgia [None]
  - Dysphagia [None]
  - Haematuria [None]
  - Dizziness [None]
  - Insomnia [None]
  - Chronic fatigue syndrome [None]
  - Vision blurred [None]
  - Peripheral swelling [None]
  - Weight decreased [None]
  - Asthenia [None]
  - Swelling [None]
  - Gastrointestinal disorder [None]
  - Back pain [None]
  - Hypergammaglobulinaemia benign monoclonal [None]
  - Muscular weakness [None]
  - Loss of consciousness [None]
  - Arthralgia [None]
  - Diarrhoea [None]
  - Coagulopathy [None]
  - Suicide attempt [None]
  - Gait disturbance [None]
